FAERS Safety Report 21158245 (Version 1)
Quarter: 2022Q3

REPORT INFORMATION
  Report Type: Spontaneous
  Country: IR (occurrence: IR)
  Receive Date: 20220801
  Receipt Date: 20220801
  Transmission Date: 20221027
  Serious: Yes (Death, Hospitalization)
  Sender: FDA-Public Use
  Company Number: IR-BAYER-2022P008173

PATIENT
  Age: 48 Year
  Sex: Male

DRUGS (4)
  1. STIVARGA [Suspect]
     Active Substance: REGORAFENIB
     Indication: Gastrointestinal stromal tumour
     Dosage: 160 MG, QD DAILY FOR 3 WEEKS ON AND ONE WEEK OFF
     Route: 048
  2. STIVARGA [Suspect]
     Active Substance: REGORAFENIB
     Indication: Metastases to liver
  3. IMATINIB [Concomitant]
     Active Substance: IMATINIB
  4. SUNITINIB [Concomitant]
     Active Substance: SUNITINIB

REACTIONS (4)
  - Gastrointestinal stromal tumour [Fatal]
  - Blood albumin decreased [Fatal]
  - Hypotension [Fatal]
  - Coma scale abnormal [Fatal]
